FAERS Safety Report 7068762-5 (Version None)
Quarter: 2010Q4

REPORT INFORMATION
  Report Type: 
  Country: None (occurrence: None)
  Receive Date: 20101028
  Receipt Date: 20101021
  Transmission Date: 20110411
  Serious: Yes (Other)
  Sender: FDA-Public Use
  Company Number: US-PFIZER INC-2010134553

PATIENT
  Sex: Female

DRUGS (1)
  1. CHANTIX [Suspect]
     Dosage: UNK

REACTIONS (11)
  - DEPRESSION [None]
  - DIZZINESS [None]
  - DRY THROAT [None]
  - DYSKINESIA [None]
  - HALLUCINATION, AUDITORY [None]
  - INJURY [None]
  - LOSS OF CONSCIOUSNESS [None]
  - MALAISE [None]
  - PHARYNGEAL OEDEMA [None]
  - SLEEP DISORDER [None]
  - VOMITING [None]
